FAERS Safety Report 21337053 (Version 3)
Quarter: 2022Q4

REPORT INFORMATION
  Report Type: Report from Study
  Country: US (occurrence: US)
  Receive Date: 20220915
  Receipt Date: 20221220
  Transmission Date: 20230113
  Serious: Yes (Other)
  Sender: FDA-Public Use
  Company Number: US-NOVARTISPH-NVSC2022US206517

PATIENT
  Sex: Female

DRUGS (1)
  1. KESIMPTA [Suspect]
     Active Substance: OFATUMUMAB
     Indication: Product used for unknown indication
     Dosage: UNK
     Route: 065

REACTIONS (15)
  - Multiple sclerosis relapse [Unknown]
  - Visual impairment [Unknown]
  - Balance disorder [Unknown]
  - Hypoaesthesia [Unknown]
  - Nephrolithiasis [Unknown]
  - Back pain [Unknown]
  - Urinary tract infection [Unknown]
  - Dysuria [Unknown]
  - Abdominal pain upper [Unknown]
  - Constipation [Unknown]
  - Sinusitis [Unknown]
  - COVID-19 [Unknown]
  - Drug ineffective [Unknown]
  - Asthenia [Unknown]
  - Muscle spasticity [Unknown]
